FAERS Safety Report 5163410-3 (Version None)
Quarter: 2006Q4

REPORT INFORMATION
  Report Type: 
  Country: None (occurrence: None)
  Receive Date: 20061204
  Receipt Date: 20061123
  Transmission Date: 20070319
  Serious: Yes (Hospitalization)
  Sender: FDA-Public Use
  Company Number: FR-JNJFOC-20061105355

PATIENT
  Age: 57 Year
  Sex: Male

DRUGS (4)
  1. REMICADE [Suspect]
     Indication: ANKYLOSING SPONDYLITIS
     Route: 042
  2. TOPALGIC [Concomitant]
     Route: 048
  3. FORADIL [Concomitant]
     Route: 055
  4. BECLOMETHASONE DIPROPIONATE [Concomitant]
     Route: 055

REACTIONS (1)
  - BRAIN NEOPLASM [None]
